FAERS Safety Report 13086259 (Version 1)
Quarter: 2017Q1

REPORT INFORMATION
  Report Type: Spontaneous
  Country: US (occurrence: US)
  Receive Date: 20170104
  Receipt Date: 20170104
  Transmission Date: 20170428
  Serious: Yes (Other)
  Sender: FDA-Public Use
  Company Number: US-ALLERGAN-1671725US

PATIENT
  Age: 40 Year
  Sex: Female

DRUGS (5)
  1. AMITRIPTYLINE [Concomitant]
     Active Substance: AMITRIPTYLINE
     Indication: DEPRESSION
     Dosage: 25 MG, PRN
     Route: 048
  2. AMITRIPTYLINE [Concomitant]
     Active Substance: AMITRIPTYLINE
     Indication: ANXIETY
  3. VRAYLAR [Suspect]
     Active Substance: CARIPRAZINE
     Indication: AFFECTIVE DISORDER
     Dosage: 1.5 MG, QD
     Route: 048
     Dates: start: 20160628, end: 20160628
  4. CYMBALTA [Concomitant]
     Active Substance: DULOXETINE HYDROCHLORIDE
     Indication: ANXIETY
  5. CYMBALTA [Concomitant]
     Active Substance: DULOXETINE HYDROCHLORIDE
     Indication: DEPRESSION
     Dosage: 30 MG, UNK
     Route: 048

REACTIONS (1)
  - Seizure [Recovered/Resolved]

NARRATIVE: CASE EVENT DATE: 20160628
